FAERS Safety Report 16988308 (Version 1)
Quarter: 2019Q4

REPORT INFORMATION
  Report Type: Spontaneous
  Country: DE (occurrence: DE)
  Receive Date: 20191104
  Receipt Date: 20191104
  Transmission Date: 20200122
  Serious: Yes (Hospitalization, Other)
  Sender: FDA-Public Use
  Company Number: DE-GLAXOSMITHKLINE-DE2019195887

PATIENT
  Age: 36 Year
  Sex: Male

DRUGS (3)
  1. CYCLOCAPS BUDESONID [Concomitant]
     Indication: ASTHMA
     Dosage: DAILY DOSE: 400 ?G MICROGRAM(S) EVERY DAYS
     Route: 055
  2. FORMOTEROL [Concomitant]
     Active Substance: FORMOTEROL
     Indication: ASTHMA
     Dosage: DAILY DOSE: 24 ?G MICROGRAM(S) EVERY DAYS
     Route: 055
  3. NUCALA [Suspect]
     Active Substance: MEPOLIZUMAB
     Indication: ASTHMA
     Dosage: 1 DF, UNK
     Route: 058
     Dates: start: 201711

REACTIONS (3)
  - Acute myocardial infarction [Not Recovered/Not Resolved]
  - Cardiac failure chronic [Not Recovered/Not Resolved]
  - Congestive cardiomyopathy [Not Recovered/Not Resolved]

NARRATIVE: CASE EVENT DATE: 201909
